FAERS Safety Report 17538614 (Version 1)
Quarter: 2020Q1

REPORT INFORMATION
  Report Type: Spontaneous
  Country: US (occurrence: US)
  Receive Date: 20200313
  Receipt Date: 20200313
  Transmission Date: 20200409
  Serious: No
  Sender: FDA-Public Use
  Company Number: US-LEADING PHARMA LLC-US-2020LEASPO00028

PATIENT
  Age: 81 Year
  Sex: Male
  Weight: 155 kg

DRUGS (6)
  1. Q10 [Concomitant]
     Active Substance: UBIDECARENONE
  2. COBALAMIN [Concomitant]
     Active Substance: COBALAMIN
  3. FUROSEMIDE TABLETS USP [Suspect]
     Active Substance: FUROSEMIDE
  4. ASCORBIC ACID. [Concomitant]
     Active Substance: ASCORBIC ACID
  5. FLEXURA [Concomitant]
  6. METOPROLOL. [Concomitant]
     Active Substance: METOPROLOL

REACTIONS (5)
  - Drug ineffective [Unknown]
  - Muscle twitching [Unknown]
  - Dizziness [Unknown]
  - Asthenia [Unknown]
  - Fatigue [Unknown]
